FAERS Safety Report 17096061 (Version 1)
Quarter: 2019Q4

REPORT INFORMATION
  Report Type: Spontaneous
  Country: US (occurrence: US)
  Receive Date: 20191202
  Receipt Date: 20191202
  Transmission Date: 20200122
  Serious: Yes (Other)
  Sender: FDA-Public Use
  Company Number: US-BRISTOL-MYERS SQUIBB COMPANY-BMS-2019-113343

PATIENT
  Sex: Male

DRUGS (1)
  1. ELIQUIS [Suspect]
     Active Substance: APIXABAN
     Indication: INTRACARDIAC THROMBUS
     Dosage: 5 MILLIGRAM, BID
     Route: 048

REACTIONS (3)
  - Pain [Unknown]
  - Haemorrhoids [Unknown]
  - Intentional product use issue [Unknown]
